FAERS Safety Report 5093874-5 (Version None)
Quarter: 2006Q3

REPORT INFORMATION
  Report Type: 
  Country: None (occurrence: None)
  Receive Date: 20060831
  Receipt Date: 20060821
  Transmission Date: 20061208
  Serious: Yes (Other)
  Sender: FDA-Public Use
  Company Number: PHBS2006TH12490

PATIENT
  Age: 4 Year
  Sex: Male
  Weight: 34 kg

DRUGS (1)
  1. RITALIN [Suspect]
     Indication: ATTENTION DEFICIT/HYPERACTIVITY DISORDER
     Dosage: 5 MG, BID
     Route: 048
     Dates: start: 20060820

REACTIONS (3)
  - ABNORMAL BEHAVIOUR [None]
  - NERVOUSNESS [None]
  - PARANOIA [None]
